FAERS Safety Report 10014734 (Version 3)
Quarter: 2014Q4

REPORT INFORMATION
  Report Type: Report from Study
  Country: JP (occurrence: JP)
  Receive Date: 20140317
  Receipt Date: 20141022
  Transmission Date: 20150528
  Serious: Yes (Hospitalization)
  Sender: FDA-Public Use
  Company Number: PHHY2014JP030482

PATIENT
  Age: 65 Year
  Sex: Male
  Weight: 62 kg

DRUGS (34)
  1. RIVOTRIL [Suspect]
     Active Substance: CLONAZEPAM
     Indication: MULTIPLE SCLEROSIS
     Dosage: 1.5 MG, QD
     Route: 048
  2. ACTOS [Concomitant]
     Active Substance: PIOGLITAZONE HYDROCHLORIDE
     Indication: DIABETES MELLITUS
     Dosage: 30 MG, QD
     Route: 048
     Dates: start: 20131024
  3. URIEF [Concomitant]
     Active Substance: SILODOSIN
     Indication: BENIGN PROSTATIC HYPERPLASIA
     Dosage: 8 MG, DAILY
     Route: 048
  4. GILENYA [Suspect]
     Active Substance: FINGOLIMOD HYDROCHLORIDE
     Indication: MULTIPLE SCLEROSIS
     Dosage: 0.5 MG, DAILY
     Route: 048
     Dates: start: 20120620, end: 20140409
  5. GILENYA [Suspect]
     Active Substance: FINGOLIMOD HYDROCHLORIDE
     Dosage: 0.5 MG, QOD
     Route: 048
     Dates: start: 20140417, end: 20140501
  6. GILENYA [Suspect]
     Active Substance: FINGOLIMOD HYDROCHLORIDE
     Dosage: 0.5 MG, QD
     Route: 048
     Dates: start: 20140502
  7. NOVO HEPARIN [Suspect]
     Active Substance: HEPARIN SODIUM
     Dosage: 20 KIU, QD
     Route: 051
     Dates: start: 20140403, end: 20140405
  8. MOHRUS [Concomitant]
     Active Substance: KETOPROFEN
     Indication: MULTIPLE SCLEROSIS
     Dosage: 1 DF, PRN
     Route: 061
     Dates: start: 20140410
  9. GLACTIV [Suspect]
     Active Substance: SITAGLIPTIN
     Dosage: 100 MG, DAILY
     Route: 048
     Dates: start: 20130627
  10. NOVO HEPARIN [Suspect]
     Active Substance: HEPARIN SODIUM
     Dosage: 20 KIU, QD
     Route: 051
     Dates: start: 20140409, end: 20140411
  11. MYSER [Concomitant]
     Active Substance: DIFLUPREDNATE
     Indication: ARTHROPOD STING
     Dosage: UNK UKN, PRN
     Route: 061
  12. SOL-MELCORT [Suspect]
     Active Substance: METHYLPREDNISOLONE SODIUM SUCCINATE
     Indication: MULTIPLE SCLEROSIS
     Dosage: 1000 MG, QD
     Route: 051
     Dates: start: 20110729, end: 20110731
  13. STAYBLA [Concomitant]
     Active Substance: IMIDAFENACIN
     Indication: BENIGN PROSTATIC HYPERPLASIA
     Dosage: 0.1 MG, QD
     Route: 048
     Dates: start: 20131024, end: 20131127
  14. AMARYL [Concomitant]
     Active Substance: GLIMEPIRIDE
     Dosage: 4 MG, QD
     Route: 048
     Dates: start: 20130627, end: 20131029
  15. CALONAL [Concomitant]
     Active Substance: ACETAMINOPHEN
     Indication: MULTIPLE SCLEROSIS
     Dosage: 400 MG, QD
     Route: 048
     Dates: end: 20120618
  16. GLACTIV [Suspect]
     Active Substance: SITAGLIPTIN
     Dosage: 100 MG, DAILY
     Route: 048
     Dates: start: 20131128
  17. SOL-MELCORT [Suspect]
     Active Substance: METHYLPREDNISOLONE SODIUM SUCCINATE
     Dosage: 1000 MG, QD
     Route: 051
     Dates: start: 20140403, end: 20140405
  18. NOVO HEPARIN [Suspect]
     Active Substance: HEPARIN SODIUM
     Indication: MULTIPLE SCLEROSIS
     Dosage: 10 KIU, QD
     Route: 051
     Dates: start: 20110729, end: 20110731
  19. SUREPOST [Concomitant]
     Active Substance: REPAGLINIDE
     Indication: DIABETES MELLITUS
     Dosage: 1 DF, PRN
     Route: 048
     Dates: start: 201403
  20. TAKEPRON [Concomitant]
     Active Substance: LANSOPRAZOLE
     Indication: GASTRIC ULCER
     Dosage: 15 MG, QD
     Route: 048
  21. AVONEX [Concomitant]
     Active Substance: INTERFERON BETA-1A
     Indication: MULTIPLE SCLEROSIS
     Route: 030
  22. ISOTONIC SODIUM CHLORIDE SOLUTION [Suspect]
     Active Substance: SODIUM CHLORIDE
     Dosage: 130 ML, QD
     Route: 051
     Dates: start: 20140409, end: 20140411
  23. MAGLAX [Concomitant]
     Active Substance: MAGNESIUM OXIDE
     Indication: MULTIPLE SCLEROSIS
     Dosage: 990 MG, QD
     Route: 048
     Dates: start: 20140403
  24. AVOLVE [Concomitant]
     Active Substance: DUTASTERIDE
     Indication: BENIGN PROSTATIC HYPERPLASIA
     Dosage: 0.5 MG, QD
     Route: 048
     Dates: end: 20130822
  25. AMARYL [Concomitant]
     Active Substance: GLIMEPIRIDE
     Dosage: 4 MG, DAILY
     Route: 048
     Dates: end: 20131105
  26. GILENYA [Suspect]
     Active Substance: FINGOLIMOD HYDROCHLORIDE
     Dosage: 0.5 MG, Q72H
     Route: 048
     Dates: start: 20140410, end: 20140416
  27. GLACTIV [Suspect]
     Active Substance: SITAGLIPTIN
     Indication: DIABETES MELLITUS
     Dosage: 50 MG, DAILY
     Route: 048
     Dates: end: 20130626
  28. VESICARE [Concomitant]
     Active Substance: SOLIFENACIN SUCCINATE
     Indication: BENIGN PROSTATIC HYPERPLASIA
     Dosage: 2.5 MG, QD
     Route: 048
     Dates: end: 20140619
  29. GLACTIV [Suspect]
     Active Substance: SITAGLIPTIN
     Dosage: 50 MG, DAILY
     Route: 048
     Dates: end: 20131128
  30. SOL-MELCORT [Suspect]
     Active Substance: METHYLPREDNISOLONE SODIUM SUCCINATE
     Dosage: 1000 MG, QD
     Route: 051
     Dates: start: 20140409, end: 20140411
  31. ISOTONIC SODIUM CHLORIDE SOLUTION [Suspect]
     Active Substance: SODIUM CHLORIDE
     Indication: MULTIPLE SCLEROSIS
     Dosage: 300 ML, QD
     Route: 051
     Dates: start: 20110729, end: 20110731
  32. ISOTONIC SODIUM CHLORIDE SOLUTION [Suspect]
     Active Substance: SODIUM CHLORIDE
     Dosage: 130 ML, QD
     Route: 051
     Dates: start: 20140403, end: 20140405
  33. AMARYL [Concomitant]
     Active Substance: GLIMEPIRIDE
     Indication: DIABETES MELLITUS
     Dosage: 1 MG, QD
     Route: 048
     Dates: end: 20130206
  34. AMARYL [Concomitant]
     Active Substance: GLIMEPIRIDE
     Dosage: 2 MG, QD
     Route: 048
     Dates: start: 20130207, end: 20130626

REACTIONS (6)
  - Multiple sclerosis relapse [Recovering/Resolving]
  - Liver disorder [Recovered/Resolved]
  - Hypoaesthesia [Recovering/Resolving]
  - Lymphocyte count decreased [Recovered/Resolved]
  - Diabetes mellitus [Recovering/Resolving]
  - Eustachian tube patulous [Recovering/Resolving]

NARRATIVE: CASE EVENT DATE: 20120920
